FAERS Safety Report 6824772-1 (Version None)
Quarter: 2010Q3

REPORT INFORMATION
  Report Type: 
  Country: None (occurrence: None)
  Receive Date: 20100708
  Receipt Date: 20061119
  Transmission Date: 20110219
  Serious: No
  Sender: FDA-Public Use
  Company Number: US-PFIZER INC-2006147229

PATIENT
  Sex: Female
  Weight: 58.06 kg

DRUGS (6)
  1. CHANTIX [Suspect]
     Indication: SMOKING CESSATION THERAPY
     Route: 048
     Dates: start: 20061113, end: 20061115
  2. SERZONE [Concomitant]
     Route: 048
  3. TOPROL-XL [Concomitant]
     Route: 048
  4. MEDROXYPROGESTERONE ACETATE [Concomitant]
     Route: 048
  5. ESTROPIPATE [Concomitant]
     Route: 048
  6. NEXIUM [Concomitant]
     Route: 048

REACTIONS (5)
  - AGGRESSION [None]
  - ANGER [None]
  - MENTAL DISORDER [None]
  - PERSONALITY DISORDER [None]
  - TENSION HEADACHE [None]
